FAERS Safety Report 4444258-1 (Version None)
Quarter: 2004Q3

REPORT INFORMATION
  Report Type: 
  Country: None (occurrence: None)
  Receive Date: 20040902
  Receipt Date: 20040816
  Transmission Date: 20050211
  Serious: Yes (Hospitalization)
  Sender: FDA-Public Use
  Company Number: USA040875701

PATIENT
  Age: 25 Year
  Sex: Female
  Weight: 54 kg

DRUGS (3)
  1. HUMALOG [Suspect]
     Dosage: 32 U DAY
     Dates: start: 20020101
  2. HUMULIN R [Suspect]
     Dates: start: 20040301, end: 20040301
  3. LANTUS [Concomitant]

REACTIONS (4)
  - CYSTITIS [None]
  - GALLBLADDER OPERATION [None]
  - KIDNEY INFECTION [None]
  - STRESS SYMPTOMS [None]
